FAERS Safety Report 8926003 (Version 1)
Quarter: 2012Q4

REPORT INFORMATION
  Report Type: 
  Country: US (occurrence: US)
  Receive Date: 20121126
  Receipt Date: 20121126
  Transmission Date: 20130627
  Serious: Yes (Life-Threatening)
  Sender: FDA-Public Use
  Company Number: PHEH2012US022894

PATIENT
  Age: 46 Year
  Sex: Male

DRUGS (1)
  1. AFINITOR [Suspect]
     Dosage: 10 mg, QD
     Route: 048
     Dates: start: 20120318, end: 20121120

REACTIONS (4)
  - Swollen tongue [Unknown]
  - Dyspnoea [Unknown]
  - Dysphagia [Unknown]
  - Tongue disorder [Unknown]
